FAERS Safety Report 24959261 (Version 1)
Quarter: 2025Q1

REPORT INFORMATION
  Report Type: Spontaneous
  Country: US (occurrence: US)
  Receive Date: 20250212
  Receipt Date: 20250212
  Transmission Date: 20250409
  Serious: No
  Sender: BIOVITRUM
  Company Number: US-BIOVITRUM-2025-US-001425

PATIENT
  Sex: Female

DRUGS (2)
  1. KINERET [Suspect]
     Active Substance: ANAKINRA
     Indication: Product used for unknown indication
     Dates: start: 20250102
  2. KINERET [Suspect]
     Active Substance: ANAKINRA
     Dates: start: 20241229, end: 20250125

REACTIONS (9)
  - Pain [Unknown]
  - Headache [Unknown]
  - Product dose omission issue [Unknown]
  - Needle issue [Unknown]
  - Drug ineffective [Unknown]
  - Injection site pain [Unknown]
  - Arthritis [Not Recovered/Not Resolved]
  - Fear of injection [Unknown]
  - Injection site inflammation [Unknown]
